FAERS Safety Report 21757835 (Version 1)
Quarter: 2022Q4

REPORT INFORMATION
  Report Type: Spontaneous
  Country: US (occurrence: None)
  Receive Date: 20221221
  Receipt Date: 20221221
  Transmission Date: 20230113
  Serious: No
  Sender: FDA-Public Use
  Company Number: US-ROCHE-2897767

PATIENT

DRUGS (4)
  1. ACTIVASE [Suspect]
     Active Substance: ALTEPLASE
     Indication: Product used for unknown indication
     Dosage: ONGOING-UNKNOWN, LYOPHILIZED VIALS 100 MG
     Route: 065
  2. ACTIVASE [Suspect]
     Active Substance: ALTEPLASE
  3. ACTIVASE [Suspect]
     Active Substance: ALTEPLASE
     Dosage: ONGOING-UNKNOWN, LYOPHILIZED VIALS 100 MG
     Route: 065
  4. ACTIVASE [Suspect]
     Active Substance: ALTEPLASE

REACTIONS (3)
  - Treatment delayed [Unknown]
  - Device issue [Unknown]
  - No adverse event [Unknown]
